FAERS Safety Report 12190263 (Version 4)
Quarter: 2016Q2

REPORT INFORMATION
  Report Type: Spontaneous
  Country: MX (occurrence: MX)
  Receive Date: 20160318
  Receipt Date: 20160625
  Transmission Date: 20160815
  Serious: Yes (Hospitalization, Other)
  Sender: FDA-Public Use
  Company Number: PHHY2016MX035949

PATIENT
  Age: 64 Year
  Sex: Female

DRUGS (5)
  1. OMEPRAZOLE. [Concomitant]
     Active Substance: OMEPRAZOLE
     Indication: GASTRITIS
     Dosage: UNK
     Route: 065
     Dates: start: 201407
  2. ACLASTA [Suspect]
     Active Substance: ZOLEDRONIC ACID
     Indication: OSTEOPENIA
     Dosage: 1 OT, UNK
     Route: 065
     Dates: start: 201501, end: 201501
  3. ACLASTA [Suspect]
     Active Substance: ZOLEDRONIC ACID
     Dosage: UNK
     Route: 065
     Dates: start: 201601, end: 201601
  4. MICARDIS AMLO [Concomitant]
     Active Substance: AMLODIPINE BESYLATE\TELMISARTAN
     Indication: PRODUCT USED FOR UNKNOWN INDICATION
     Dosage: 1 DF, QD
     Route: 048
  5. GABAPENTIN. [Concomitant]
     Active Substance: GABAPENTIN
     Indication: NEUROPATHY PERIPHERAL
     Dosage: 1 DF, Q12H
     Route: 065
     Dates: start: 2009

REACTIONS (8)
  - Ulcer [Unknown]
  - Bile duct stone [Unknown]
  - Helicobacter infection [Unknown]
  - Faeces discoloured [Recovered/Resolved]
  - Diarrhoea [Recovered/Resolved]
  - Gallbladder disorder [Unknown]
  - Fatigue [Unknown]
  - Cholelithiasis [Unknown]

NARRATIVE: CASE EVENT DATE: 20150122
